FAERS Safety Report 7625848-1 (Version None)
Quarter: 2011Q3

REPORT INFORMATION
  Report Type: 
  Country: None (occurrence: None)
  Receive Date: 20110713
  Receipt Date: 20110704
  Transmission Date: 20111222
  Serious: Yes (Death)
  Sender: FDA-Public Use
  Company Number: 2011-2251

PATIENT
  Age: 1 Year
  Sex: Female
  Weight: 5.2 kg

DRUGS (7)
  1. INCRELEX [Suspect]
     Indication: INSULIN RESISTANCE SYNDROME
     Dosage: 0.1 MG (0.1 MG, 1 IN 1 D), SUBCUTANEOUS; 1.35 MG (1.35 MG, 1 IN 1 D), SUBCUTANEOUS
     Route: 058
     Dates: start: 20100316
  2. INCRELEX [Suspect]
     Indication: INSULIN RESISTANCE SYNDROME
     Dosage: 0.1 MG (0.1 MG, 1 IN 1 D), SUBCUTANEOUS; 1.35 MG (1.35 MG, 1 IN 1 D), SUBCUTANEOUS
     Route: 058
     Dates: end: 20101225
  3. URSO FALK [Concomitant]
  4. KCL 7.46% (POTASSIUM CHLORIDE) [Concomitant]
  5. UNACID (UNACID) [Concomitant]
  6. MAGNESIUM DIASPORAL (MAGNESIUM CITRATE) [Concomitant]
  7. VITAMIN D [Concomitant]

REACTIONS (3)
  - PNEUMONIA [None]
  - BLOOD GLUCOSE INCREASED [None]
  - PYREXIA [None]
